FAERS Safety Report 8053475-3 (Version None)
Quarter: 2012Q1

REPORT INFORMATION
  Report Type: 
  Country: None (occurrence: None)
  Receive Date: 20120118
  Receipt Date: 20120111
  Transmission Date: 20120608
  Serious: Yes (Other)
  Sender: FDA-Public Use
  Company Number: US-PFIZER INC-2012009650

PATIENT
  Sex: Male

DRUGS (6)
  1. LYRICA [Suspect]
     Indication: LUMBAR RADICULOPATHY
  2. CELEXA [Concomitant]
     Dosage: UNK
  3. MULTI-VITAMINS [Concomitant]
     Dosage: UNK
  4. KLONOPIN [Concomitant]
     Dosage: UNK
  5. LYRICA [Suspect]
     Indication: NEUROPATHY PERIPHERAL
     Dosage: 100 MG, 3X/DAY
     Dates: end: 20111201
  6. PERCOCET [Concomitant]
     Dosage: UNK

REACTIONS (6)
  - POOR PERIPHERAL CIRCULATION [None]
  - PARONYCHIA [None]
  - ANGIOPATHY [None]
  - ISCHAEMIA [None]
  - SKIN DISCOLOURATION [None]
  - SKIN EXFOLIATION [None]
